FAERS Safety Report 18116886 (Version 1)
Quarter: 2020Q3

REPORT INFORMATION
  Report Type: Spontaneous
  Country: NL (occurrence: NL)
  Receive Date: 20200806
  Receipt Date: 20200806
  Transmission Date: 20201103
  Serious: Yes (Hospitalization, Disabling, Congenital Anomaly)
  Sender: FDA-Public Use
  Company Number: NL-TEVA-2020-NL-1809820

PATIENT
  Sex: Female

DRUGS (3)
  1. MISOPROSTOL. [Suspect]
     Active Substance: MISOPROSTOL
     Indication: ABORTION INDUCED
     Dosage: 2 X 200 MICROGRAM
     Route: 064
  2. MISOPROSTOL. [Suspect]
     Active Substance: MISOPROSTOL
     Dosage: 3 X 200 MICROGRAM MISOPROSTOL, MOTHER ROUTE OF ADMINISTRATION: VAGINALLY
     Route: 064
  3. METHOTREXATE. [Suspect]
     Active Substance: METHOTREXATE
     Indication: ABORTION INDUCED
     Route: 064

REACTIONS (5)
  - Oral fibroma [Recovered/Resolved]
  - Foetal methotrexate syndrome [Not Recovered/Not Resolved]
  - Growth retardation [Not Recovered/Not Resolved]
  - Underweight [Not Recovered/Not Resolved]
  - Foetal exposure during pregnancy [Unknown]
